FAERS Safety Report 15450272 (Version 2)
Quarter: 2018Q4

REPORT INFORMATION
  Report Type: Spontaneous
  Country: US (occurrence: US)
  Receive Date: 20181001
  Receipt Date: 20181214
  Transmission Date: 20190204
  Serious: No
  Sender: FDA-Public Use
  Company Number: US-PFIZER INC-2018388853

PATIENT
  Age: 61 Year
  Sex: Female

DRUGS (1)
  1. METHOTREXATE SODIUM. [Suspect]
     Active Substance: METHOTREXATE SODIUM
     Dosage: 0.8 ML, WEEKLY (0.8 CC ONCE WEEKLY)
     Route: 058
     Dates: start: 201709, end: 201807

REACTIONS (3)
  - Rash [Not Recovered/Not Resolved]
  - Incorrect route of product administration [Unknown]
  - Urticaria [Unknown]

NARRATIVE: CASE EVENT DATE: 201807
